FAERS Safety Report 19388769 (Version 1)
Quarter: 2021Q2

REPORT INFORMATION
  Report Type: Spontaneous
  Country: PL (occurrence: PL)
  Receive Date: 20210608
  Receipt Date: 20210608
  Transmission Date: 20210717
  Serious: Yes (Other)
  Sender: FDA-Public Use
  Company Number: PL-MYLANLABS-2021M1032646

PATIENT
  Age: 42 Year
  Sex: Female
  Weight: 80 kg

DRUGS (5)
  1. ZOLPIDEM [Suspect]
     Active Substance: ZOLPIDEM TARTRATE
     Indication: STRESS
  2. ESCIPRAM [Suspect]
     Active Substance: ESCITALOPRAM OXALATE
     Indication: ADJUSTMENT DISORDER
     Dosage: 10 MILLIGRAM
     Dates: start: 20201130, end: 20201214
  3. CORONAL /00802602/ [Suspect]
     Active Substance: BISOPROLOL FUMARATE
     Indication: ESSENTIAL HYPERTENSION
     Dosage: 5 MILLIGRAM
     Dates: start: 2018
  4. ZOLPIDEM [Suspect]
     Active Substance: ZOLPIDEM TARTRATE
     Indication: ADJUSTMENT DISORDER
     Dosage: 5 MILLIGRAM
     Dates: start: 20201130, end: 20201203
  5. ESCIPRAM [Suspect]
     Active Substance: ESCITALOPRAM OXALATE
     Indication: STRESS

REACTIONS (4)
  - Chills [Unknown]
  - Pruritus [Unknown]
  - Rash [Unknown]
  - Sleep disorder [Unknown]

NARRATIVE: CASE EVENT DATE: 20201212
